FAERS Safety Report 5167851-X (Version None)
Quarter: 2006Q4

REPORT INFORMATION
  Report Type: 
  Country: None (occurrence: None)
  Receive Date: 20061206
  Receipt Date: 20061206
  Transmission Date: 20070319
  Serious: Yes (Other)
  Sender: FDA-Public Use
  Company Number: None

PATIENT
  Sex: Female

DRUGS (1)
  1. AVELOX [Suspect]
     Indication: INFECTION
     Dosage: 400MG   ONCE DAILY  PO
     Route: 048
     Dates: start: 20061114, end: 20061115

REACTIONS (2)
  - SKIN INFECTION [None]
  - SKIN LESION [None]
